FAERS Safety Report 18100527 (Version 1)
Quarter: 2020Q3

REPORT INFORMATION
  Report Type: Spontaneous
  Country: US (occurrence: US)
  Receive Date: 20200731
  Receipt Date: 20200731
  Transmission Date: 20201103
  Serious: No
  Sender: FDA-Public Use
  Company Number: US-PFIZER INC-2020289918

PATIENT
  Age: 51 Year
  Sex: Female

DRUGS (1)
  1. DIFLUCAN [Suspect]
     Active Substance: FLUCONAZOLE
     Indication: NASOPHARYNGITIS
     Dosage: UNK

REACTIONS (3)
  - Product use in unapproved indication [Unknown]
  - Disease recurrence [Unknown]
  - Off label use [Unknown]
